FAERS Safety Report 10243302 (Version 1)
Quarter: 2014Q2

REPORT INFORMATION
  Report Type: Spontaneous
  Country: GB (occurrence: GB)
  Receive Date: 20140618
  Receipt Date: 20140618
  Transmission Date: 20141212
  Serious: Yes (Hospitalization)
  Sender: FDA-Public Use
  Company Number: PHFR2014GB004215

PATIENT
  Age: 57 Year
  Sex: Female

DRUGS (6)
  1. ESTRADOT [Suspect]
     Indication: HORMONE REPLACEMENT THERAPY
     Dosage: 50 UG, QD
     Route: 062
  2. ZOPICLONE [Concomitant]
  3. NORTRIPTYLINE [Concomitant]
  4. SERETIDE [Concomitant]
  5. MIRTAZAPINE [Concomitant]
  6. SALBUTAMOL [Concomitant]

REACTIONS (2)
  - Confusional state [Unknown]
  - Incorrect dose administered [Not Recovered/Not Resolved]
